FAERS Safety Report 21360009 (Version 3)
Quarter: 2023Q1

REPORT INFORMATION
  Report Type: Spontaneous
  Country: US (occurrence: US)
  Receive Date: 20220921
  Receipt Date: 20230215
  Transmission Date: 20230417
  Serious: No
  Sender: FDA-Public Use
  Company Number: US-PFIZER INC-PV202200066680

PATIENT
  Age: 10 Year
  Sex: Female

DRUGS (1)
  1. XELJANZ [Suspect]
     Active Substance: TOFACITINIB CITRATE
     Indication: Colitis ulcerative
     Dosage: 5 MG
     Dates: start: 20220913

REACTIONS (2)
  - Pharyngitis streptococcal [Unknown]
  - Off label use [Unknown]

NARRATIVE: CASE EVENT DATE: 20220901
